FAERS Safety Report 8308749-5 (Version None)
Quarter: 2012Q1

REPORT INFORMATION
  Report Type: 
  Country: None (occurrence: None)
  Receive Date: 20120327
  Receipt Date: 20110314
  Transmission Date: 20120608
  Serious: Yes (Disabling)
  Sender: FDA-Public Use
  Company Number: PHHY2011US18970

PATIENT
  Age: 62 Year
  Sex: Female
  Weight: 61 kg

DRUGS (2)
  1. GLEEVEC [Suspect]
     Indication: GASTRIC CANCER
     Dosage: 400 MG, DAILY, ORAL ; 100 MG, BID, ORAL
     Route: 048
     Dates: start: 20100903, end: 20100906
  2. GLEEVEC [Suspect]
     Indication: GASTRIC CANCER
     Dosage: 400 MG, DAILY, ORAL ; 100 MG, BID, ORAL
     Route: 048
     Dates: start: 20100930

REACTIONS (1)
  - DIARRHOEA [None]
